FAERS Safety Report 12788148 (Version 1)
Quarter: 2016Q3

REPORT INFORMATION
  Report Type: Spontaneous
  Country: US (occurrence: US)
  Receive Date: 20160928
  Receipt Date: 20160928
  Transmission Date: 20161109
  Serious: No
  Sender: FDA-Public Use
  Company Number: US-TEVA-683949USA

PATIENT
  Sex: Female
  Weight: 69.46 kg

DRUGS (1)
  1. SPRINTEC [Suspect]
     Active Substance: ETHINYL ESTRADIOL\NORGESTIMATE
     Indication: MENSTRUATION IRREGULAR
     Dosage: 0.250 MG/0.035 MG
     Route: 065
     Dates: end: 20160726

REACTIONS (1)
  - Pain [Unknown]
